FAERS Safety Report 11746680 (Version 3)
Quarter: 2016Q1

REPORT INFORMATION
  Report Type: Spontaneous
  Country: JP (occurrence: JP)
  Receive Date: 20151117
  Receipt Date: 20160202
  Transmission Date: 20160525
  Serious: No
  Sender: FDA-Public Use
  Company Number: JP-SA-2015SA141932

PATIENT
  Age: 85 Year
  Sex: Female

DRUGS (4)
  1. PLAVIX [Suspect]
     Active Substance: CLOPIDOGREL BISULFATE
     Indication: CEREBRAL INFARCTION
     Route: 048
     Dates: start: 2009, end: 20150824
  2. EDIROL [Concomitant]
     Active Substance: ELDECALCITOL
     Route: 048
     Dates: start: 2009
  3. LIPITOR [Concomitant]
     Active Substance: ATORVASTATIN CALCIUM
     Route: 048
     Dates: start: 2009
  4. SERMION [Concomitant]
     Active Substance: NICERGOLINE
     Route: 048
     Dates: start: 2009

REACTIONS (1)
  - Alopecia totalis [Recovering/Resolving]

NARRATIVE: CASE EVENT DATE: 201507
